FAERS Safety Report 5104133-6 (Version None)
Quarter: 2006Q3

REPORT INFORMATION
  Report Type: 
  Country: None (occurrence: None)
  Receive Date: 20060911
  Receipt Date: 20060803
  Transmission Date: 20061208
  Serious: Yes (Hospitalization)
  Sender: FDA-Public Use
  Company Number: CAO06000967

PATIENT
  Age: 18 Year
  Sex: Male

DRUGS (1)
  1. NYQUIL, FORM/VERSION/FLAVOR UNKNOWN (ETHANOL UNKNOWN UNK, CHLORPHENAMI [Suspect]
     Indication: NASOPHARYNGITIS
     Dosage: ORAL
     Route: 048

REACTIONS (2)
  - BLOOD BILIRUBIN INCREASED [None]
  - HEPATIC FAILURE [None]
